FAERS Safety Report 7961683-2 (Version None)
Quarter: 2011Q4

REPORT INFORMATION
  Report Type: 
  Country: None (occurrence: None)
  Receive Date: 20111207
  Receipt Date: 20111124
  Transmission Date: 20120403
  Serious: Yes (Other)
  Sender: FDA-Public Use
  Company Number: GB-ELI_LILLY_AND_COMPANY-GB201111007460

PATIENT
  Age: 38 Year
  Sex: Female

DRUGS (12)
  1. TOPAMAX [Concomitant]
     Indication: EPILEPSY
     Dosage: 50 MG, QD
     Route: 048
     Dates: start: 20070703
  2. KEPPRA [Concomitant]
     Dosage: UNK
     Route: 065
     Dates: start: 20110727
  3. KEPPRA [Concomitant]
     Dosage: UNK
     Route: 065
     Dates: start: 20110831
  4. CLONAZEPAM [Concomitant]
     Dosage: UNK
     Route: 065
     Dates: start: 20100915
  5. FLUOXETINE [Suspect]
     Dosage: 20 MG, QD
     Dates: start: 20101018, end: 20110831
  6. TOPAMAX [Concomitant]
     Dosage: 100 MG, BID
     Route: 048
     Dates: start: 20101025
  7. ANTIDEPRESSANTS [Concomitant]
     Indication: DEPRESSION
  8. CLONAZEPAM [Concomitant]
     Dosage: UNK
     Route: 065
     Dates: start: 20091130
  9. TOPAMAX [Concomitant]
     Dosage: 150 MG, QD
     Route: 048
     Dates: start: 20091130, end: 20100623
  10. TOPAMAX [Concomitant]
     Dosage: 50 MG, BID
     Route: 048
     Dates: start: 20100915, end: 20100915
  11. TOPAMAX [Concomitant]
     Dosage: UNK, QD
     Route: 048
     Dates: start: 20110830, end: 20110920
  12. FOLIC ACID [Concomitant]
     Dosage: UNK
     Dates: start: 20091130

REACTIONS (14)
  - MOOD SWINGS [None]
  - DIARRHOEA [None]
  - PARAESTHESIA [None]
  - WEIGHT DECREASED [None]
  - SOMNOLENCE [None]
  - ABDOMINAL PAIN UPPER [None]
  - TOOTH LOSS [None]
  - GINGIVAL BLEEDING [None]
  - NERVE INJURY [None]
  - IRRITABLE BOWEL SYNDROME [None]
  - DEPRESSION [None]
  - MALAISE [None]
  - FEELING ABNORMAL [None]
  - PALPITATIONS [None]
